FAERS Safety Report 23064791 (Version 1)
Quarter: 2023Q4

REPORT INFORMATION
  Report Type: Spontaneous
  Country: US (occurrence: None)
  Receive Date: 20231012
  Receipt Date: 20231012
  Transmission Date: 20240109
  Serious: No
  Sender: FDA-Public Use
  Company Number: None

PATIENT
  Sex: Female

DRUGS (1)
  1. KISQALI [Suspect]
     Active Substance: RIBOCICLIB
     Indication: Breast neoplasm
     Dosage: DAILY AT THE SAME TIME FOR 21 DAYS OF A 28 DAY CYCLE. ;
     Route: 048
     Dates: start: 202309

REACTIONS (2)
  - Swelling [None]
  - Rash [None]
